FAERS Safety Report 16232024 (Version 1)
Quarter: 2019Q2

REPORT INFORMATION
  Report Type: Spontaneous
  Country: HR (occurrence: HR)
  Receive Date: 20190424
  Receipt Date: 20190424
  Transmission Date: 20190711
  Serious: Yes (Death, Hospitalization)
  Sender: FDA-Public Use
  Company Number: HR-ACCORD-123787

PATIENT
  Age: 55 Year
  Sex: Male

DRUGS (8)
  1. CLONAZEPAM. [Suspect]
     Active Substance: CLONAZEPAM
     Indication: PARKINSON^S DISEASE
     Dosage: 0.5 MG, QD
     Route: 065
  2. VILDAGLIPTIN [Suspect]
     Active Substance: VILDAGLIPTIN
     Indication: PARKINSON^S DISEASE
     Dosage: 50 MG, UNK
     Route: 065
     Dates: start: 2009
  3. ROPINIROLE/ROPINIROLE HYDROCHLORIDE [Suspect]
     Active Substance: ROPINIROLE HYDROCHLORIDE
     Indication: PARKINSON^S DISEASE
     Dosage: 8 MG, QD
     Route: 065
  4. RASAGILINE/RASAGILINE MESYLATE [Suspect]
     Active Substance: RASAGILINE MESYLATE
     Indication: PARKINSON^S DISEASE
     Dosage: 1 MG, QD
     Route: 065
  5. LEVODOPA [Suspect]
     Active Substance: LEVODOPA
     Indication: PARKINSON^S DISEASE
     Dosage: 500 MG, QD
     Route: 065
  6. AMANTADINE. [Suspect]
     Active Substance: AMANTADINE HYDROCHLORIDE
     Indication: PARKINSON^S DISEASE
     Dosage: 500 MG, QD
     Route: 065
  7. OXAZEPAM. [Suspect]
     Active Substance: OXAZEPAM
     Indication: PARKINSON^S DISEASE
     Dosage: 10 MG, QD
     Route: 065
  8. ENTACAPONE. [Suspect]
     Active Substance: ENTACAPONE
     Indication: PARKINSON^S DISEASE
     Dosage: 800 MG, QD
     Route: 065

REACTIONS (14)
  - Autonomic nervous system imbalance [Unknown]
  - Tachypnoea [Unknown]
  - Haemodynamic instability [Unknown]
  - Dyskinesia [Unknown]
  - Cardiac arrest [Fatal]
  - Leukocytosis [Unknown]
  - Acute respiratory failure [Not Recovered/Not Resolved]
  - Product use in unapproved indication [Unknown]
  - Polyuria [Unknown]
  - Renal impairment [Unknown]
  - Hyperpyrexia [Not Recovered/Not Resolved]
  - Hyponatraemia [Unknown]
  - General physical health deterioration [Not Recovered/Not Resolved]
  - Cardiovascular disorder [Unknown]

NARRATIVE: CASE EVENT DATE: 2017
